FAERS Safety Report 25901068 (Version 1)
Quarter: 2025Q4

REPORT INFORMATION
  Report Type: Spontaneous
  Country: BD (occurrence: BD)
  Receive Date: 20251009
  Receipt Date: 20251009
  Transmission Date: 20260118
  Serious: Yes (Other)
  Sender: RANBAXY
  Company Number: BD-SUN PHARMACEUTICAL INDUSTRIES LTD-2025R1-530800

PATIENT
  Age: 7 Year
  Sex: Female
  Weight: 32 kg

DRUGS (5)
  1. FOSPHENYTOIN [Suspect]
     Active Substance: FOSPHENYTOIN
     Indication: Ventricular septal defect
     Dosage: 4 MILLIGRAM/KILOGRAM
     Route: 065
  2. VALPROIC ACID [Suspect]
     Active Substance: VALPROIC ACID
     Indication: Ventricular septal defect
     Dosage: 20 MILLIGRAM/KILOGRAM
     Route: 065
  3. LEVETIRACETAM [Suspect]
     Active Substance: LEVETIRACETAM
     Indication: Ventricular septal defect
     Dosage: 20 MILLIGRAM/KILOGRAM
     Route: 065
  4. LORAZEPAM [Suspect]
     Active Substance: LORAZEPAM
     Indication: Ventricular septal defect
     Dosage: 0.08 MILLIGRAM/KILOGRAM
     Route: 065
  5. PHENOBARBITAL [Suspect]
     Active Substance: PHENOBARBITAL
     Indication: Ventricular septal defect
     Dosage: 15 MILLIGRAM/KILOGRAM
     Route: 065

REACTIONS (2)
  - Therapy non-responder [Unknown]
  - Ventricular tachycardia [Unknown]
